FAERS Safety Report 7655398-8 (Version None)
Quarter: 2011Q3

REPORT INFORMATION
  Report Type: 
  Country: None (occurrence: None)
  Receive Date: 20110729
  Receipt Date: 20110716
  Transmission Date: 20111222
  Serious: Yes (Other)
  Sender: FDA-Public Use
  Company Number: 2011AP001532

PATIENT
  Age: 56 Year
  Sex: Female

DRUGS (1)
  1. LITHIUM CARBONATE [Suspect]
     Indication: BIPOLAR DISORDER
     Dosage: 300 MG;AM ; 450 MG;HS

REACTIONS (5)
  - DYSPNOEA EXERTIONAL [None]
  - ATRIOVENTRICULAR BLOCK SECOND DEGREE [None]
  - DIZZINESS [None]
  - ANTIPSYCHOTIC DRUG LEVEL BELOW THERAPEUTIC [None]
  - CONDUCTION DISORDER [None]
